FAERS Safety Report 6036112-9 (Version None)
Quarter: 2009Q1

REPORT INFORMATION
  Report Type: 
  Country: None (occurrence: None)
  Receive Date: 20090113
  Receipt Date: 20090105
  Transmission Date: 20090719
  Serious: Yes (Other)
  Sender: FDA-Public Use
  Company Number: US-JNJFOC-20090100949

PATIENT
  Age: 62 Year
  Sex: Female
  Weight: 122.47 kg

DRUGS (4)
  1. TYLENOL (CAPLET) [Suspect]
     Route: 048
  2. TYLENOL (CAPLET) [Suspect]
     Indication: ARTHRITIS
     Route: 048
  3. TOPROL-XL [Concomitant]
     Indication: HYPERTENSION
  4. ANTIVERT [Concomitant]
     Indication: DIZZINESS

REACTIONS (2)
  - CHOKING [None]
  - FOREIGN BODY TRAUMA [None]
